FAERS Safety Report 17082922 (Version 4)
Quarter: 2021Q1

REPORT INFORMATION
  Report Type: Spontaneous
  Country: GR (occurrence: GR)
  Receive Date: 20191127
  Receipt Date: 20210302
  Transmission Date: 20210419
  Serious: Yes (Other)
  Sender: FDA-Public Use
  Company Number: NVSC2019GR046231

PATIENT
  Age: 58 Year
  Sex: Male

DRUGS (7)
  1. CAELYX [Suspect]
     Active Substance: DOXORUBICIN HYDROCHLORIDE
     Indication: PLASMA CELL LEUKAEMIA
     Dosage: UNK (BOLUS)
     Route: 065
     Dates: start: 2018
  2. DARATUMUMAB [Suspect]
     Active Substance: DARATUMUMAB
     Indication: PLASMA CELL LEUKAEMIA
     Dosage: UNK (BOLUS)
     Route: 065
     Dates: start: 2018
  3. CYCLOPHOSPHAMIDE. [Suspect]
     Active Substance: CYCLOPHOSPHAMIDE
     Indication: PLASMA CELL LEUKAEMIA
     Dosage: 1000 MG, BOLUS
     Route: 065
     Dates: start: 2018
  4. BORTEZOMIB. [Suspect]
     Active Substance: BORTEZOMIB
     Indication: PLASMA CELL LEUKAEMIA
     Dosage: UNK (BOLUS)
     Route: 065
     Dates: start: 2018
  5. DEXAMETHASONE. [Suspect]
     Active Substance: DEXAMETHASONE
     Indication: PLASMA CELL LEUKAEMIA
     Dosage: UNK (BOLUS)
     Route: 065
     Dates: start: 2018
  6. VELCADE [Suspect]
     Active Substance: BORTEZOMIB
     Indication: PLASMA CELL LEUKAEMIA
     Dosage: UNK
     Route: 065
     Dates: start: 2018
  7. DARZALEX [Suspect]
     Active Substance: DARATUMUMAB
     Indication: PLASMA CELL LEUKAEMIA
     Dosage: UNK
     Route: 065
     Dates: start: 2018

REACTIONS (17)
  - Guillain-Barre syndrome [Recovered/Resolved]
  - Pyrexia [Unknown]
  - Cytomegalovirus infection [Unknown]
  - Respiratory tract infection [Unknown]
  - Lymphopenia [Unknown]
  - Thrombocytopenia [Unknown]
  - Product use in unapproved indication [Unknown]
  - Paraesthesia [Recovered/Resolved]
  - Muscular weakness [Recovered/Resolved]
  - Dysstasia [Recovered/Resolved]
  - Cytomegalovirus viraemia [Recovered/Resolved]
  - Dysphagia [Recovered/Resolved]
  - Dysarthria [Recovered/Resolved]
  - Haematotoxicity [Unknown]
  - Peripheral motor neuropathy [Recovered/Resolved]
  - Paresis [Unknown]
  - Off label use [Unknown]

NARRATIVE: CASE EVENT DATE: 201812
